FAERS Safety Report 10363797 (Version 1)
Quarter: 2014Q3

REPORT INFORMATION
  Report Type: Spontaneous
  Country: US (occurrence: US)
  Receive Date: 20140805
  Receipt Date: 20140805
  Transmission Date: 20150326
  Serious: No
  Sender: FDA-Public Use
  Company Number: US-009507513-1408USA001050

PATIENT
  Age: 5 Year
  Sex: Female

DRUGS (2)
  1. SINGULAIR [Suspect]
     Active Substance: MONTELUKAST SODIUM
     Dosage: UNK
     Route: 048
     Dates: start: 201202
  2. SINGULAIR [Suspect]
     Active Substance: MONTELUKAST SODIUM
     Dosage: UNK
     Route: 048

REACTIONS (14)
  - Feeling abnormal [Unknown]
  - Abdominal pain [Unknown]
  - Feeling abnormal [Not Recovered/Not Resolved]
  - Abdominal pain [Not Recovered/Not Resolved]
  - Headache [Not Recovered/Not Resolved]
  - Crying [Unknown]
  - Insomnia [Unknown]
  - Headache [Unknown]
  - Insomnia [Not Recovered/Not Resolved]
  - Nightmare [Not Recovered/Not Resolved]
  - Nightmare [Unknown]
  - Decreased appetite [Unknown]
  - Crying [Not Recovered/Not Resolved]
  - Decreased appetite [Not Recovered/Not Resolved]
